FAERS Safety Report 7457390-5 (Version None)
Quarter: 2011Q1

REPORT INFORMATION
  Report Type: 
  Country: None (occurrence: None)
  Receive Date: 20110302
  Receipt Date: 20100921
  Transmission Date: 20110831
  Serious: Yes (Hospitalization, Other)
  Sender: FDA-Public Use
  Company Number: 163-21880-09032003

PATIENT
  Age: 85 Year
  Sex: Female
  Weight: 50.3493 kg

DRUGS (16)
  1. FISH OIL (FISH OIL) [Concomitant]
  2. VITAMIN D [Concomitant]
  3. SUN VALLEY B VITAMIN (VITAMIN B) [Concomitant]
  4. REVLIMID [Suspect]
     Indication: LYMPHATIC DISORDER
     Dosage: 10 MG, 1 IN 1 D, PO, 2.5 MG, 1 IN 2 D, PO, 10 MG, DAILY, PO
     Route: 048
     Dates: start: 20090109, end: 20090301
  5. REVLIMID [Suspect]
     Indication: MYELODYSPLASTIC SYNDROME
     Dosage: 10 MG, 1 IN 1 D, PO, 2.5 MG, 1 IN 2 D, PO, 10 MG, DAILY, PO
     Route: 048
     Dates: start: 20090109, end: 20090301
  6. REVLIMID [Suspect]
     Indication: LYMPHATIC DISORDER
     Dosage: 10 MG, 1 IN 1 D, PO, 2.5 MG, 1 IN 2 D, PO, 10 MG, DAILY, PO
     Route: 048
     Dates: start: 20090401, end: 20090801
  7. REVLIMID [Suspect]
     Indication: MYELODYSPLASTIC SYNDROME
     Dosage: 10 MG, 1 IN 1 D, PO, 2.5 MG, 1 IN 2 D, PO, 10 MG, DAILY, PO
     Route: 048
     Dates: start: 20090401, end: 20090801
  8. REVLIMID [Suspect]
     Indication: LYMPHATIC DISORDER
     Dosage: 10 MG, 1 IN 1 D, PO, 2.5 MG, 1 IN 2 D, PO, 10 MG, DAILY, PO
     Route: 048
     Dates: start: 20100826, end: 20100907
  9. REVLIMID [Suspect]
     Indication: MYELODYSPLASTIC SYNDROME
     Dosage: 10 MG, 1 IN 1 D, PO, 2.5 MG, 1 IN 2 D, PO, 10 MG, DAILY, PO
     Route: 048
     Dates: start: 20100826, end: 20100907
  10. REVLIMID [Suspect]
  11. REVLIMID [Suspect]
  12. HYPERIMMUNE EGG POWDER (MULTIVITAMIN AND MINERAL SUPPLEMENT) [Concomitant]
  13. BLOOD (BLOOD AND RELATED PRODUCTS) [Concomitant]
  14. EXJADE [Concomitant]
  15. ORANARIR (NASAL PREPARATIONS) [Concomitant]
  16. ASCORBIC ACID [Concomitant]

REACTIONS (21)
  - BLOOD COUNT ABNORMAL [None]
  - NEUTROPENIA [None]
  - ENTEROCOCCAL INFECTION [None]
  - COLITIS [None]
  - JOINT SWELLING [None]
  - BLOOD ALBUMIN [None]
  - DYSGEUSIA [None]
  - THROMBOCYTOPENIA [None]
  - DEHYDRATION [None]
  - CLOSTRIDIUM COLITIS [None]
  - PROTEIN TOTAL [None]
  - BLOOD ALBUMIN DECREASED [None]
  - PROTEIN TOTAL DECREASED [None]
  - DIARRHOEA [None]
  - WHITE BLOOD CELL COUNT DECREASED [None]
  - RASH [None]
  - PNEUMONIA [None]
  - WEIGHT DECREASED [None]
  - TONGUE DISORDER [None]
  - DECREASED APPETITE [None]
  - WEIGHT [None]
